FAERS Safety Report 4722607-4 (Version None)
Quarter: 2005Q3

REPORT INFORMATION
  Report Type: 
  Country: None (occurrence: None)
  Receive Date: 20050720
  Receipt Date: 20050708
  Transmission Date: 20060218
  Serious: Yes (Hospitalization)
  Sender: FDA-Public Use
  Company Number: 200511291BCC

PATIENT
  Age: 87 Year
  Sex: Male
  Weight: 90.2658 kg

DRUGS (4)
  1. ALEVE [Suspect]
     Indication: BACK PAIN
     Dosage: 220 MG, BID, ORAL
     Route: 048
     Dates: start: 20050324, end: 20050325
  2. GLUCOTROL [Concomitant]
  3. GLUCOPHAGE [Concomitant]
  4. INSULIN [Concomitant]

REACTIONS (3)
  - HAEMOPTYSIS [None]
  - IATROGENIC INJURY [None]
  - PROCEDURAL COMPLICATION [None]
